FAERS Safety Report 21042401 (Version 1)
Quarter: 2022Q3

REPORT INFORMATION
  Report Type: Spontaneous
  Country: US (occurrence: None)
  Receive Date: 20220701
  Receipt Date: 20220701
  Transmission Date: 20221027
  Serious: Yes (Other)
  Sender: FDA-Public Use
  Company Number: None

PATIENT
  Age: 35 Year
  Sex: Female
  Weight: 48.15 kg

DRUGS (1)
  1. PAXLOVID [Suspect]
     Active Substance: NIRMATRELVIR\RITONAVIR
     Indication: COVID-19
     Dosage: OTHER QUANTITY : 30 TABLET(S);?FREQUENCY : TWICE A DAY;?
     Route: 048
     Dates: start: 20220630, end: 20220701

REACTIONS (12)
  - Disorientation [None]
  - Bradykinesia [None]
  - Gait disturbance [None]
  - Diarrhoea [None]
  - Nausea [None]
  - Cold sweat [None]
  - Hyperhidrosis [None]
  - Hypoaesthesia [None]
  - Hypoaesthesia [None]
  - Hypoaesthesia [None]
  - Paraesthesia [None]
  - Feeling abnormal [None]

NARRATIVE: CASE EVENT DATE: 20220630
